FAERS Safety Report 7329339-7 (Version None)
Quarter: 2011Q1

REPORT INFORMATION
  Report Type: 
  Country: None (occurrence: None)
  Receive Date: 20110303
  Receipt Date: 20110228
  Transmission Date: 20110831
  Serious: Yes (Hospitalization)
  Sender: FDA-Public Use
  Company Number: IT-MERCK-1102ITA00028

PATIENT
  Age: 58 Year
  Sex: Female

DRUGS (7)
  1. LEVOTHYROXINE SODIUM [Concomitant]
     Route: 065
  2. BISOPROLOL FUMARATE [Concomitant]
     Route: 065
  3. PRIMAXIN [Suspect]
     Indication: SEPSIS
     Route: 042
     Dates: start: 20101227, end: 20110109
  4. ISOSORBIDE MONONITRATE [Concomitant]
     Route: 065
  5. DARBEPOETIN ALFA [Concomitant]
     Route: 065
  6. TAMOXIFEN CITRATE [Concomitant]
     Route: 065
  7. CLONAZEPAM [Concomitant]
     Route: 065

REACTIONS (1)
  - EPILEPSY [None]
